FAERS Safety Report 6896308-0 (Version None)
Quarter: 2010Q3

REPORT INFORMATION
  Report Type: 
  Country: None (occurrence: None)
  Receive Date: 20100802
  Receipt Date: 20100729
  Transmission Date: 20110219
  Serious: Yes (Hospitalization)
  Sender: FDA-Public Use
  Company Number: Z0004644A

PATIENT
  Age: 49 Year
  Sex: Female
  Weight: 111.2 kg

DRUGS (2)
  1. LAPATINIB [Suspect]
     Indication: BREAST CANCER METASTATIC
     Dosage: 1000MG PER DAY
     Route: 048
     Dates: start: 20100324
  2. NAB-PACLITAXEL [Suspect]
     Indication: BREAST CANCER METASTATIC
     Dosage: 100MGM2 CYCLIC
     Route: 042
     Dates: start: 20100324

REACTIONS (3)
  - BREAST CANCER METASTATIC [None]
  - DYSPNOEA [None]
  - MALIGNANT NEOPLASM PROGRESSION [None]
